FAERS Safety Report 14565924 (Version 1)
Quarter: 2018Q1

REPORT INFORMATION
  Report Type: Spontaneous
  Country: US (occurrence: US)
  Receive Date: 20180222
  Receipt Date: 20180222
  Transmission Date: 20180509
  Serious: Yes (Hospitalization)
  Sender: FDA-Public Use
  Company Number: None

PATIENT
  Age: 62 Year
  Sex: Male

DRUGS (7)
  1. SPRYCEL [Suspect]
     Active Substance: DASATINIB
     Indication: CHRONIC MYELOID LEUKAEMIA
     Route: 048
     Dates: end: 20160324
  2. METOPROLOL. [Concomitant]
     Active Substance: METOPROLOL
  3. ASPIRIN. [Concomitant]
     Active Substance: ASPIRIN
  4. PHOSPHA [Concomitant]
  5. CRESTOR [Concomitant]
     Active Substance: ROSUVASTATIN CALCIUM
  6. BUMETANIDE. [Concomitant]
     Active Substance: BUMETANIDE
  7. PANTOPRAZOLE [Concomitant]
     Active Substance: PANTOPRAZOLE

REACTIONS (2)
  - Pulmonary oedema [None]
  - Therapy cessation [None]

NARRATIVE: CASE EVENT DATE: 201802
